FAERS Safety Report 10111430 (Version 2)
Quarter: 2014Q2

REPORT INFORMATION
  Report Type: Report from Study
  Country: US (occurrence: US)
  Receive Date: 20140425
  Receipt Date: 20140425
  Transmission Date: 20141212
  Serious: Yes (Hospitalization)
  Sender: FDA-Public Use
  Company Number: US-ASTRAZENECA-2014SE25978

PATIENT
  Age: 61 Year
  Sex: Male
  Weight: 90.7 kg

DRUGS (8)
  1. ATACAND [Suspect]
     Indication: BLOOD PRESSURE ABNORMAL
     Route: 048
  2. TOPROL XL [Suspect]
     Indication: CARDIAC DISORDER
     Route: 048
  3. ZOCOR [Concomitant]
     Indication: BLOOD CHOLESTEROL ABNORMAL
  4. METFORMIN HCL [Concomitant]
     Indication: DIABETES MELLITUS
  5. NEURONTIN [Concomitant]
     Indication: NEUROPATHY PERIPHERAL
  6. CELEXA [Concomitant]
     Indication: STRESS
  7. CELEXA [Concomitant]
     Indication: ANXIETY
  8. ROXYCODONE [Concomitant]
     Indication: ARTHRITIS
     Dosage: 5 PER DAY

REACTIONS (2)
  - Blood pressure increased [Unknown]
  - Drug ineffective [Unknown]
